FAERS Safety Report 15205861 (Version 1)
Quarter: 2018Q4

REPORT INFORMATION
  Report Type: Report from Study
  Country: ES (occurrence: ES)
  Receive Date: 20180727
  Receipt Date: 20180727
  Transmission Date: 20190204
  Serious: Yes (Hospitalization)
  Sender: FDA-Public Use
  Company Number: ES-TEVA-2018-ES-929973

PATIENT
  Age: 12 Year
  Sex: Male
  Weight: 42 kg

DRUGS (6)
  1. AMOXICILLIN(108A) [Suspect]
     Active Substance: AMOXICILLIN
     Indication: HELICOBACTER INFECTION
     Route: 048
     Dates: start: 20171202, end: 20171212
  2. LOPERAMIDA (3327A) [Suspect]
     Active Substance: LOPERAMIDE
     Route: 048
     Dates: start: 20171102, end: 20171206
  3. SIROLIMUS (1269A) [Concomitant]
     Indication: RENAL TRANSPLANT
     Dosage: 4 MILLIGRAM DAILY;
     Route: 048
     Dates: start: 20151107
  4. METRONIDAZOL (1966A) [Suspect]
     Active Substance: METRONIDAZOLE
     Indication: HELICOBACTER INFECTION
     Route: 048
     Dates: start: 20171202, end: 20171212
  5. TACROLIMUS (2694A) [Concomitant]
     Active Substance: TACROLIMUS
     Indication: RENAL TRANSPLANT
     Route: 048
     Dates: start: 20151107
  6. OMEPRAZOL (2141A) [Concomitant]
     Active Substance: OMEPRAZOLE
     Dosage: 40 MILLIGRAM DAILY;
     Route: 048
     Dates: start: 20171202

REACTIONS (1)
  - Mixed liver injury [Recovered/Resolved]

NARRATIVE: CASE EVENT DATE: 20171207
